FAERS Safety Report 12401006 (Version 1)
Quarter: 2016Q2

REPORT INFORMATION
  Report Type: Spontaneous
  Country: US (occurrence: None)
  Receive Date: 20160524
  Receipt Date: 20160524
  Transmission Date: 20160815
  Serious: Yes (Hospitalization)
  Sender: FDA-Public Use
  Company Number: None

PATIENT
  Age: 62 Year
  Sex: Male
  Weight: 77.5 kg

DRUGS (1)
  1. LISINOPRIL. [Suspect]
     Active Substance: LISINOPRIL
     Dates: start: 20160326, end: 20160328

REACTIONS (2)
  - Syncope [None]
  - Orthostatic hypotension [None]

NARRATIVE: CASE EVENT DATE: 20160328
